FAERS Safety Report 24547166 (Version 1)
Quarter: 2024Q4

REPORT INFORMATION
  Report Type: Spontaneous
  Country: FR (occurrence: FR)
  Receive Date: 20241025
  Receipt Date: 20241025
  Transmission Date: 20250115
  Serious: Yes (Hospitalization)
  Sender: ACCORD
  Company Number: None

PATIENT
  Age: 65 Year
  Sex: Female
  Weight: 93 kg

DRUGS (6)
  1. PACLITAXEL [Suspect]
     Active Substance: PACLITAXEL
     Indication: Lung adenocarcinoma
     Dosage: STRENGTH: 6 MG/ML,
     Dates: start: 20240131, end: 20240131
  2. AVASTIN [Concomitant]
     Active Substance: BEVACIZUMAB
     Indication: Lung adenocarcinoma
     Dosage: STRENGTH: 25 MG/ML
     Dates: start: 20240131, end: 20240131
  3. ONDANSETRON [Concomitant]
     Active Substance: ONDANSETRON
     Indication: Lung adenocarcinoma
     Dosage: STRENGTH: 2 MG/ML, SOLUTION FOR INJECTION IN AMPOULE (I.V.)
     Dates: start: 20240131, end: 20240131
  4. CIMETIDINE HYDROCHLORIDE [Concomitant]
     Active Substance: CIMETIDINE HYDROCHLORIDE
     Indication: Lung adenocarcinoma
     Dates: start: 20240131, end: 20240131
  5. METHYLPREDNISOLONE [Concomitant]
     Active Substance: METHYLPREDNISOLONE
     Indication: Lung adenocarcinoma
     Dosage: STRENGTH: 120 MG, POWDER FOR SOLUTION FOR INJECTION (IM-IV)
     Dates: start: 20240131, end: 20240131
  6. POLARAMINE [Concomitant]
     Active Substance: DEXCHLORPHENIRAMINE MALEATE
     Indication: Lung adenocarcinoma
     Dosage: STRENGTH: 5 MG/1 ML
     Dates: start: 20240131, end: 20240131

REACTIONS (2)
  - Acute respiratory distress syndrome [Recovered/Resolved]
  - Hypersensitivity [Recovered/Resolved]

NARRATIVE: CASE EVENT DATE: 20240131
